FAERS Safety Report 4664764-4 (Version None)
Quarter: 2005Q2

REPORT INFORMATION
  Report Type: 
  Country: None (occurrence: None)
  Receive Date: 20050516
  Receipt Date: 20050509
  Transmission Date: 20051028
  Serious: Yes (Life-Threatening, Hospitalization)
  Sender: FDA-Public Use
  Company Number: STA-AE-05-012

PATIENT
  Age: 45 Year
  Sex: Female

DRUGS (6)
  1. DIAZEPAM [Suspect]
     Dosage: 2000 MG PER DAY, UNK
  2. VERAPAMIL [Suspect]
     Dosage: 7200 MG PER DAY, UNK
  3. DOXEPIN HCL [Suspect]
     Dosage: 1600 MG PER DAY, UNK
  4. TEMAZEPAM [Suspect]
     Dosage: 10000 MG PER DAY, UNK
  5. CLONAZEPAM [Suspect]
     Dosage: 100 MG PER DAY
  6. QUETIAPINE [Suspect]

REACTIONS (10)
  - BRADYCARDIA [None]
  - CARDIAC ARREST [None]
  - GLASGOW COMA SCALE ABNORMAL [None]
  - HAEMODIALYSIS [None]
  - HYPOTENSION [None]
  - LOSS OF CONSCIOUSNESS [None]
  - METABOLIC ACIDOSIS [None]
  - MULTIPLE DRUG OVERDOSE [None]
  - PLASMAPHERESIS [None]
  - SUBENDOCARDIAL ISCHAEMIA [None]
